FAERS Safety Report 8169986-6 (Version None)
Quarter: 2012Q1

REPORT INFORMATION
  Report Type: 
  Country: None (occurrence: None)
  Receive Date: 20120228
  Receipt Date: 20120222
  Transmission Date: 20120608
  Serious: Yes (Death, Hospitalization, Other)
  Sender: FDA-Public Use
  Company Number: JP-ELI_LILLY_AND_COMPANY-JP201202006547

PATIENT
  Age: 49 Year
  Sex: Female

DRUGS (2)
  1. HUMALOG [Suspect]
     Indication: TYPE 1 DIABETES MELLITUS
  2. HUMULIN N [Suspect]
     Indication: TYPE 1 DIABETES MELLITUS

REACTIONS (9)
  - WHEELCHAIR USER [None]
  - PYELONEPHRITIS [None]
  - SHUNT INFECTION [None]
  - FEMORAL NECK FRACTURE [None]
  - APHAGIA [None]
  - HYPOGLYCAEMIC COMA [None]
  - SEPSIS [None]
  - RENAL FAILURE CHRONIC [None]
  - MULTI-ORGAN FAILURE [None]
